FAERS Safety Report 4892189-5 (Version None)
Quarter: 2006Q1

REPORT INFORMATION
  Report Type: 
  Country: None (occurrence: None)
  Receive Date: 20060125
  Receipt Date: 20060125
  Transmission Date: 20060701
  Serious: No
  Sender: FDA-Public Use
  Company Number: None

PATIENT
  Age: 66 Year
  Sex: Female
  Weight: 76.2043 kg

DRUGS (3)
  1. AMMONIUM LACTATE [Suspect]
     Indication: DRY SKIN
     Dosage: USE ONE TUBE EVERY 2 WEEKS OVER ENTIRE BODY
  2. AMMONIUM LACTATE [Suspect]
     Indication: PRURITUS
     Dosage: USE ONE TUBE EVERY 2 WEEKS OVER ENTIRE BODY
  3. AMMONIUM LACTATE [Suspect]
     Indication: SKIN EXFOLIATION
     Dosage: USE ONE TUBE EVERY 2 WEEKS OVER ENTIRE BODY

REACTIONS (1)
  - PHARMACEUTICAL PRODUCT COMPLAINT [None]
